FAERS Safety Report 4852043-1 (Version None)
Quarter: 2005Q4

REPORT INFORMATION
  Report Type: 
  Country: None (occurrence: None)
  Receive Date: 20051213
  Receipt Date: 20051205
  Transmission Date: 20060501
  Serious: Yes (Death)
  Sender: FDA-Public Use
  Company Number: CA-ROCHE-427310

PATIENT
  Age: 37 Year
  Sex: Male
  Weight: 75 kg

DRUGS (7)
  1. KETOROLAC TROMETHAMINE [Suspect]
     Indication: DRUG USE FOR UNKNOWN INDICATION
     Route: 042
  2. ANAESTHETICS [Concomitant]
  3. HYDROMORPHONE [Concomitant]
  4. HEPARIN [Concomitant]
     Route: 058
  5. RANITIDINE [Concomitant]
     Route: 042
  6. HYDROCORTISONE [Concomitant]
     Route: 042
  7. TAZOCIN [Concomitant]

REACTIONS (1)
  - CARDIAC ARREST [None]
